FAERS Safety Report 14671892 (Version 3)
Quarter: 2018Q4

REPORT INFORMATION
  Report Type: Report from Study
  Country: TW (occurrence: TW)
  Receive Date: 20180323
  Receipt Date: 20181004
  Transmission Date: 20190204
  Serious: Yes (Death, Life-Threatening, Hospitalization, Other)
  Sender: FDA-Public Use
  Company Number: TW-INCYTE CORPORATION-2017IN008324

PATIENT

DRUGS (113)
  1. ANTICOAGULANT CITRATE DEXTROSE SOLUTION (ACD) NOS [Concomitant]
     Active Substance: CITRIC ACID MONOHYDRATE\DEXTROSE\SODIUM CITRATE
     Indication: ENTEROCOCCAL INFECTION
     Dosage: 70 ML, UNK
     Route: 042
     Dates: start: 20180202, end: 20180202
  2. ANTICOAGULANT CITRATE DEXTROSE SOLUTION (ACD) NOS [Concomitant]
     Active Substance: CITRIC ACID MONOHYDRATE\DEXTROSE\SODIUM CITRATE
     Dosage: 70 ML, UNK
     Route: 042
     Dates: start: 20180131, end: 20180131
  3. ANTICOAGULANT CITRATE DEXTROSE SOLUTION (ACD) NOS [Concomitant]
     Active Substance: CITRIC ACID MONOHYDRATE\DEXTROSE\SODIUM CITRATE
     Dosage: 140 ML, UNK
     Route: 042
     Dates: start: 20180128, end: 20180128
  4. BUTALBITAL AND ACETAMINOPHEN [Concomitant]
     Active Substance: ACETAMINOPHEN\BUTALBITAL
     Dosage: 500 MG, UNK
     Route: 048
     Dates: start: 20180226
  5. BUTALBITAL AND ACETAMINOPHEN [Concomitant]
     Active Substance: ACETAMINOPHEN\BUTALBITAL
     Dosage: 500 MG, UNK
     Route: 048
     Dates: start: 20180226
  6. DIOKTAEDRISCHER SMEKTIT [Concomitant]
     Dosage: 3 G, UNK
     Route: 048
     Dates: start: 20180110, end: 20180112
  7. ESOMEPRAZOLE. [Concomitant]
     Active Substance: ESOMEPRAZOLE MAGNESIUM
     Indication: ENTEROCOCCAL INFECTION
     Dosage: 40 MG, UNK
     Route: 042
     Dates: start: 20180101, end: 20180101
  8. FAMOTIDINE. [Concomitant]
     Active Substance: FAMOTIDINE
     Indication: PROPHYLAXIS
     Dosage: 20 MG, UNK
     Route: 048
     Dates: start: 20180104
  9. HYDROCORTISONE. [Concomitant]
     Active Substance: HYDROCORTISONE
     Indication: PROPHYLAXIS
     Dosage: 100 MG, UNK
     Route: 042
     Dates: start: 20180301, end: 20180301
  10. INSULIN [Concomitant]
     Active Substance: INSULIN NOS
     Indication: TYPE 2 DIABETES MELLITUS
     Dosage: 8 DF, UNK
     Route: 058
     Dates: start: 20180122, end: 20180125
  11. INSULIN [Concomitant]
     Active Substance: INSULIN NOS
     Dosage: 6 DF, UNK
     Route: 060
     Dates: start: 20180104, end: 20180114
  12. LABETALOL [Concomitant]
     Active Substance: LABETALOL\LABETALOL HYDROCHLORIDE
     Indication: ENTEROCOCCAL INFECTION
     Dosage: 200 MG, UNK
     Route: 048
     Dates: start: 20180102, end: 20180104
  13. NOREPINEPHRINE                     /00127502/ [Concomitant]
     Active Substance: NOREPINEPHRINE BITARTRATE
     Dosage: 5 DF, UNK (5CC/HR)
     Route: 042
     Dates: start: 20180128
  14. SALBUTAMOL [Concomitant]
     Active Substance: ALBUTEROL
     Indication: ENTEROCOCCAL INFECTION
     Dosage: 2.5 ML, UNK
     Route: 055
     Dates: start: 20180115, end: 20180117
  15. ANTICOAGULANT CITRATE DEXTROSE SOLUTION (ACD) NOS [Concomitant]
     Active Substance: CITRIC ACID MONOHYDRATE\DEXTROSE\SODIUM CITRATE
     Dosage: 70 ML, UNK
     Route: 042
     Dates: start: 20180202, end: 20180202
  16. CLOPIDOGREL [Concomitant]
     Active Substance: CLOPIDOGREL BISULFATE
     Indication: THROMBOCYTOSIS
     Dosage: 75 MG, UNK
     Route: 048
     Dates: start: 20140304, end: 20171117
  17. DARBEPOETIN ALFA [Concomitant]
     Active Substance: DARBEPOETIN ALFA
     Indication: ENTEROCOCCAL INFECTION
     Dosage: 20 MCG/ML, UNK
     Route: 058
     Dates: start: 20180306
  18. DIGOXIN. [Concomitant]
     Active Substance: DIGOXIN
     Indication: ENTEROCOCCAL INFECTION
     Dosage: 0.25 MG, UNK
     Route: 048
     Dates: start: 20170302, end: 20170302
  19. DILTIAZEM HCL [Concomitant]
     Active Substance: DILTIAZEM HYDROCHLORIDE
     Indication: PROPHYLAXIS
     Dosage: 30 MG, UNK
     Route: 048
     Dates: start: 20180105, end: 20180105
  20. DILTIAZEM HCL [Concomitant]
     Active Substance: DILTIAZEM HYDROCHLORIDE
     Dosage: 30 MG, UNK
     Route: 048
     Dates: start: 20180131, end: 20180131
  21. FURSEMIDE [Concomitant]
     Active Substance: FUROSEMIDE
     Dosage: 40 MG, UNK
     Route: 042
     Dates: start: 20180128, end: 20180130
  22. ISOSORBIDE DINITRATE. [Concomitant]
     Active Substance: ISOSORBIDE DINITRATE
     Indication: ENTEROCOCCAL INFECTION
     Dosage: 10 MG, UNK
     Route: 048
     Dates: start: 20180116, end: 20180117
  23. POTASSIUM GLUCONATE [Concomitant]
     Active Substance: POTASSIUM GLUCONATE
     Indication: ENTEROCOCCAL INFECTION
     Dosage: 1190 MG, UNK
     Route: 048
     Dates: start: 20180104, end: 20180104
  24. SILVER SULFADIAZINE. [Concomitant]
     Active Substance: SILVER SULFADIAZINE
     Indication: ENTEROCOCCAL INFECTION
     Dosage: 1 DF, UNK
     Route: 061
     Dates: start: 20171228
  25. ACETYL CYSTEINE SENJU [Concomitant]
     Active Substance: ACETYLCYSTEINE
     Dosage: 600 MG, UNK
     Route: 048
     Dates: start: 20170912, end: 20170925
  26. AMOXI CLAV [Concomitant]
     Active Substance: AMOXICILLIN\CLAVULANATE POTASSIUM
     Indication: ENTEROCOCCAL INFECTION
     Dosage: 1 DF, UNK
     Route: 042
     Dates: start: 20170912, end: 20170912
  27. BISACODYL. [Concomitant]
     Active Substance: BISACODYL
     Indication: ENTEROCOCCAL INFECTION
     Dosage: 10 MG, UNK
     Route: 050
     Dates: start: 20180101, end: 20180101
  28. DILTIAZEM HCL [Concomitant]
     Active Substance: DILTIAZEM HYDROCHLORIDE
     Dosage: 30 MG, UNK
     Route: 048
     Dates: start: 20180216, end: 20180218
  29. DILTIAZEM HCL [Concomitant]
     Active Substance: DILTIAZEM HYDROCHLORIDE
     Dosage: 30 MG, UNK
     Route: 048
     Dates: start: 20180128, end: 20180128
  30. FURSEMIDE [Concomitant]
     Active Substance: FUROSEMIDE
     Dosage: 20 MG, UNK
     Route: 042
     Dates: start: 20180105, end: 20180105
  31. FURSEMIDE [Concomitant]
     Active Substance: FUROSEMIDE
     Dosage: 20 MG, UNK
     Route: 042
     Dates: start: 20180127, end: 20180127
  32. FURSEMIDE [Concomitant]
     Active Substance: FUROSEMIDE
     Dosage: 40 MG, UNK
     Route: 042
     Dates: start: 20180106, end: 20180108
  33. DIOKTAEDRISCHER SMEKTIT [Concomitant]
     Indication: ENTEROCOCCAL INFECTION
     Dosage: 3 G, UNK
     Route: 048
     Dates: start: 20180105, end: 20180108
  34. CALADRYL                           /01381001/ [Concomitant]
     Dosage: 30 MG, UNK
     Route: 042
     Dates: start: 20180306, end: 20180306
  35. INSULIN [Concomitant]
     Active Substance: INSULIN NOS
     Dosage: 14 DF, UNK
     Route: 058
     Dates: start: 20180125, end: 20180125
  36. MAXITROL [Concomitant]
     Active Substance: DEXAMETHASONE\NEOMYCIN SULFATE\POLYMYXIN B SULFATE
     Indication: ENTEROCOCCAL INFECTION
     Dosage: 40 MG, UNK
     Route: 061
     Dates: start: 20180117
  37. PIPERACILLIN AND TAZOBACTAM [Concomitant]
     Active Substance: PIPERACILLIN SODIUM\TAZOBACTAM SODIUM
     Indication: ENTEROCOCCAL INFECTION
     Dosage: 1 DF, UNK
     Route: 042
     Dates: start: 20180912, end: 20180918
  38. POTASSIUM GLUCONATE [Concomitant]
     Active Substance: POTASSIUM GLUCONATE
     Dosage: 595 MG, UNK
     Route: 048
     Dates: start: 20180103, end: 20180104
  39. TRANEXAMIC ACID. [Concomitant]
     Active Substance: TRANEXAMIC ACID
     Indication: ENTEROCOCCAL INFECTION
     Dosage: 500 MG, UNK
     Route: 048
     Dates: start: 20171215, end: 20171226
  40. ANTICOAGULANT CITRATE DEXTROSE SOLUTION (ACD) NOS [Concomitant]
     Active Substance: CITRIC ACID MONOHYDRATE\DEXTROSE\SODIUM CITRATE
     Dosage: 140 ML, UNK
     Route: 042
     Dates: start: 20180128, end: 20180128
  41. BUTALBITAL AND ACETAMINOPHEN [Concomitant]
     Active Substance: ACETAMINOPHEN\BUTALBITAL
     Dosage: 500 MG, UNK
     Route: 048
     Dates: start: 20170912, end: 20170925
  42. BUTALBITAL AND ACETAMINOPHEN [Concomitant]
     Active Substance: ACETAMINOPHEN\BUTALBITAL
     Dosage: 500 MG, UNK
     Route: 048
     Dates: start: 20180103
  43. BUTALBITAL AND ACETAMINOPHEN [Concomitant]
     Active Substance: ACETAMINOPHEN\BUTALBITAL
     Dosage: 500 MG, UNK
     Route: 048
     Dates: start: 20170912, end: 20170925
  44. AMLODIPINE W/LISINOPRIL [Concomitant]
     Active Substance: AMLODIPINE BESYLATE\LISINOPRIL
     Indication: ENTEROCOCCAL INFECTION
     Dosage: 5 MG, UNK
     Route: 048
     Dates: start: 20180117, end: 20180127
  45. BISACODYL. [Concomitant]
     Active Substance: BISACODYL
     Dosage: 10 MG, UNK
     Route: 048
     Dates: start: 20180205, end: 20180208
  46. DIGOXIN. [Concomitant]
     Active Substance: DIGOXIN
     Dosage: 0.25 MG, UNK
     Route: 048
     Dates: start: 20170302
  47. DILTIAZEM HCL [Concomitant]
     Active Substance: DILTIAZEM HYDROCHLORIDE
     Dosage: 30 MG, UNK
     Route: 048
     Dates: start: 20180219, end: 20180226
  48. FURSEMIDE [Concomitant]
     Active Substance: FUROSEMIDE
     Dosage: 20 MG, UNK
     Route: 042
     Dates: start: 20180101, end: 20180103
  49. FLUCONAZOLE. [Concomitant]
     Active Substance: FLUCONAZOLE
     Indication: ENTEROCOCCAL INFECTION
     Dosage: 100 MG, UNK
     Route: 048
     Dates: start: 20180119
  50. INSULIN [Concomitant]
     Active Substance: INSULIN NOS
     Dosage: 10 DF, UNK
     Route: 058
     Dates: start: 20180115, end: 20180201
  51. METRONIDAZOLE W/TOCOPHEROL [Concomitant]
     Indication: ENTEROCOCCAL INFECTION
     Dosage: 500 MG, UNK
     Route: 042
     Dates: start: 20171231, end: 20180102
  52. COLISTIN SODIUM METHANESULFONATE [Concomitant]
     Active Substance: COLISTIN A SODIUM METHANESULFONATE
     Indication: ENTEROCOCCAL INFECTION
     Dosage: 10000000 DF, UNK
     Route: 042
     Dates: start: 20180302, end: 20180302
  53. ANTICOAGULANT CITRATE DEXTROSE SOLUTION (ACD) NOS [Concomitant]
     Active Substance: CITRIC ACID MONOHYDRATE\DEXTROSE\SODIUM CITRATE
     Dosage: 70 ML, UNK
     Route: 042
     Dates: start: 20180131, end: 20180131
  54. BUTALBITAL AND ACETAMINOPHEN [Concomitant]
     Active Substance: ACETAMINOPHEN\BUTALBITAL
     Dosage: 500 MG, UNK
     Route: 048
     Dates: start: 20171216, end: 20171228
  55. BUTALBITAL AND ACETAMINOPHEN [Concomitant]
     Active Substance: ACETAMINOPHEN\BUTALBITAL
     Dosage: 500 MG, UNK
     Route: 048
     Dates: start: 20171226, end: 20181228
  56. AMOXICILLIN W/FLUCLOXACILLIN [Concomitant]
     Indication: ENTEROCOCCAL INFECTION
     Dosage: 500 MG, UNK
     Route: 042
     Dates: start: 20171226, end: 20171231
  57. AMOXICILLIN W/FLUCLOXACILLIN [Concomitant]
     Dosage: 875 MG, UNK
     Route: 042
     Dates: start: 20170918, end: 20170925
  58. BETAMETHASONE. [Concomitant]
     Active Substance: BETAMETHASONE
     Indication: ENTEROCOCCAL INFECTION
     Dosage: 0.1 % 10 GM
     Route: 061
     Dates: start: 20170917, end: 20170925
  59. CLAVULANIC ACID [Concomitant]
     Active Substance: CLAVULANIC ACID
     Indication: ENTEROCOCCAL INFECTION
     Dosage: 125 MG, UNK
     Route: 048
     Dates: start: 20180918, end: 20180925
  60. CLOBATE                            /00337102/ [Concomitant]
     Indication: PROPHYLAXIS
     Dosage: 25 G, UNK (TUBE)
     Route: 061
     Dates: start: 20170630, end: 20170922
  61. CURAM                              /00852501/ [Concomitant]
     Indication: ENTEROCOCCAL INFECTION
     Dosage: 625 MG, UNK
     Route: 048
     Dates: start: 20160729, end: 20171229
  62. FURSEMIDE [Concomitant]
     Active Substance: FUROSEMIDE
     Dosage: 20 MG, UNK
     Route: 042
     Dates: start: 20180103, end: 20180108
  63. CALADRYL                           /01381001/ [Concomitant]
     Indication: PROPHYLAXIS
     Dosage: 30 MG, UNK
     Route: 042
     Dates: start: 20180111, end: 20180111
  64. FLUDIAZEPAM [Concomitant]
     Active Substance: FLUDIAZEPAM
     Indication: ENTEROCOCCAL INFECTION
     Dosage: 0.25 MG, UNK
     Route: 048
     Dates: start: 20180125, end: 20180127
  65. HYDROCORTISONE. [Concomitant]
     Active Substance: HYDROCORTISONE
     Dosage: 100 MG, UNK
     Route: 042
     Dates: start: 20180306, end: 20180306
  66. LACTULOSE W/PARAFFIN, LIQUID/WHITE SOFT PARAF [Concomitant]
     Indication: ENTEROCOCCAL INFECTION
     Dosage: 30 ML, UNK
     Route: 048
     Dates: start: 20180307, end: 20180307
  67. PIPERACILLIN AND TAZOBACTAM [Concomitant]
     Active Substance: PIPERACILLIN SODIUM\TAZOBACTAM SODIUM
     Dosage: 1 DF, UNK
     Route: 042
     Dates: start: 20171231, end: 20180102
  68. SODIUM BICARBONATE W/SWERTIA SPP. [Concomitant]
     Dosage: 80 ML, UNK
     Route: 042
     Dates: start: 20180220, end: 20180220
  69. SULFAMETHOXAZOLE AND TRIMETHOPRIM [Concomitant]
     Active Substance: SULFAMETHOXAZOLE\TRIMETHOPRIM
     Indication: CONJUNCTIVITIS
     Dosage: 9 ML, UNK (10 ML/BOT)
     Route: 050
     Dates: start: 20161118
  70. JAKAVI [Suspect]
     Active Substance: RUXOLITINIB
     Indication: MYELOFIBROSIS
     Dosage: 10 MG, BID
     Route: 048
     Dates: start: 20170106, end: 20171229
  71. BISACODYL. [Concomitant]
     Active Substance: BISACODYL
     Dosage: 10 MG, UNK
     Route: 048
     Dates: start: 20180205, end: 20180205
  72. BISACODYL. [Concomitant]
     Active Substance: BISACODYL
     Dosage: 10 MG, UNK
     Route: 061
     Dates: start: 20180311, end: 20180311
  73. FURSEMIDE [Concomitant]
     Active Substance: FUROSEMIDE
     Indication: ENTEROCOCCAL INFECTION
     Dosage: 20 MG, UNK
     Route: 042
     Dates: start: 20180104, end: 20180105
  74. EPINEPHRINE W/LIDOCAINE HYDROCHLORIDE [Concomitant]
     Active Substance: EPINEPHRINE\LIDOCAINE HYDROCHLORIDE
     Indication: ENTEROCOCCAL INFECTION
     Dosage: 1 MG, UNK
     Route: 042
     Dates: start: 20180311, end: 20180311
  75. FENTANYL. [Concomitant]
     Active Substance: FENTANYL
     Indication: ENTEROCOCCAL INFECTION
     Dosage: 12 MCG/ML, UNK
     Route: 061
     Dates: start: 20180212
  76. FLURBIPROFEN. [Concomitant]
     Active Substance: FLURBIPROFEN
     Indication: ENTEROCOCCAL INFECTION
     Dosage: 40 MG, UNK
     Route: 061
     Dates: start: 20180918, end: 20180925
  77. HYDROCORTISONE. [Concomitant]
     Active Substance: HYDROCORTISONE
     Dosage: 100 MG, UNK
     Route: 042
     Dates: start: 20180111, end: 20180111
  78. METOCLOPRAMIDE. [Concomitant]
     Active Substance: METOCLOPRAMIDE
     Indication: ENTEROCOCCAL INFECTION
     Dosage: 9.08 MG, UNK
     Route: 042
     Dates: start: 20180101, end: 20180106
  79. COLISTIN SODIUM METHANESULFONATE [Concomitant]
     Active Substance: COLISTIN A SODIUM METHANESULFONATE
     Dosage: 10000000 DF, UNK
     Route: 042
     Dates: start: 20180302
  80. APO NITROGLYCERIN [Concomitant]
     Indication: ENTEROCOCCAL INFECTION
     Dosage: 5 MG, UNK
     Route: 042
     Dates: start: 20180104, end: 20180104
  81. NOREPINEPHRINE                     /00127502/ [Concomitant]
     Active Substance: NOREPINEPHRINE BITARTRATE
     Indication: ENTEROCOCCAL INFECTION
     Dosage: 8 MG, UNK
     Route: 042
     Dates: start: 20180302, end: 20180309
  82. TERBUTALIN                         /00199202/ [Concomitant]
     Indication: ENTEROCOCCAL INFECTION
     Dosage: 5 MG, UNK
     Route: 055
     Dates: start: 20180103, end: 20180104
  83. ACETYL CYSTEINE SENJU [Concomitant]
     Active Substance: ACETYLCYSTEINE
     Indication: ENTEROCOCCAL INFECTION
     Dosage: 2 ML, UNK
     Route: 055
     Dates: start: 20180115, end: 20180118
  84. ACETYL CYSTEINE SENJU [Concomitant]
     Active Substance: ACETYLCYSTEINE
     Dosage: 600 MG, UNK
     Route: 048
     Dates: start: 20180119
  85. CLINDAMYCIN. [Concomitant]
     Active Substance: CLINDAMYCIN
     Indication: ENTEROCOCCAL INFECTION
     Dosage: 600 MG, UNK
     Route: 042
     Dates: start: 20180216, end: 20180216
  86. CODEINE PHOSPHATE [Concomitant]
     Active Substance: CODEINE PHOSPHATE
     Indication: PROPHYLAXIS
     Dosage: 15 MG, UNK
     Route: 042
     Dates: start: 20180202, end: 20180202
  87. DESLORATADINE. [Concomitant]
     Active Substance: DESLORATADINE
     Indication: ENTEROCOCCAL INFECTION
     Dosage: 5 MG, UNK
     Route: 048
     Dates: start: 20170917, end: 20170925
  88. DILTIAZEM HCL [Concomitant]
     Active Substance: DILTIAZEM HYDROCHLORIDE
     Indication: ENTEROCOCCAL INFECTION
     Dosage: 30 MG, UNK
     Route: 048
     Dates: start: 20180107, end: 20180112
  89. FURSEMIDE [Concomitant]
     Active Substance: FUROSEMIDE
     Dosage: 20 MG, UNK
     Route: 042
     Dates: start: 20180111, end: 20180111
  90. HI-BESTON [Concomitant]
     Indication: ENTEROCOCCAL INFECTION
     Dosage: 50 MG, UNK
     Route: 048
     Dates: start: 20180302
  91. LOPERAMIDE [Concomitant]
     Active Substance: LOPERAMIDE
     Indication: ENTEROCOCCAL INFECTION
     Dosage: 2 MG, UNK
     Route: 048
     Dates: start: 20180102, end: 20180112
  92. CONSLIFE [Concomitant]
     Indication: ENTEROCOCCAL INFECTION
     Dosage: 1 DF, UNK
     Route: 065
     Dates: start: 20180129, end: 20180220
  93. MOSAPRIDE CITRATE [Concomitant]
     Active Substance: MOSAPRIDE CITRATE
     Indication: ENTEROCOCCAL INFECTION
     Dosage: 5 MG, UNK
     Route: 048
     Dates: start: 20180105, end: 20180112
  94. SENNOSIDE A+B CALCIUM [Concomitant]
     Active Substance: SENNOSIDES A AND B
     Indication: ENTEROCOCCAL INFECTION
     Dosage: 12 MG, UNK
     Route: 048
     Dates: start: 20180101, end: 20180105
  95. SILVER SULFADIAZINE. [Concomitant]
     Active Substance: SILVER SULFADIAZINE
     Dosage: 1 DF, UNK
     Route: 061
     Dates: start: 20180220, end: 20180220
  96. SODIUM BICARBONATE W/SWERTIA SPP. [Concomitant]
     Indication: ENTEROCOCCAL INFECTION
     Dosage: 80 ML, UNK
     Route: 042
     Dates: start: 20180219, end: 20180219
  97. ULTRACET [Concomitant]
     Active Substance: ACETAMINOPHEN\TRAMADOL HYDROCHLORIDE
     Indication: ENTEROCOCCAL INFECTION
     Dosage: 1 DF, UNK
     Route: 048
     Dates: start: 20171228, end: 20180127
  98. BUTALBITAL AND ACETAMINOPHEN [Concomitant]
     Active Substance: ACETAMINOPHEN\BUTALBITAL
     Indication: PYREXIA
     Dosage: 500 MG, UNK
     Route: 048
     Dates: start: 20180103
  99. POLYSTYRENE SULFONATE CA [Concomitant]
     Indication: ENTEROCOCCAL INFECTION
     Dosage: 5 G, UNK
     Route: 048
     Dates: start: 20180202, end: 20180205
  100. CLINDAMYCIN. [Concomitant]
     Active Substance: CLINDAMYCIN
     Indication: BREATH ODOUR
     Dosage: 600 MG, UNK
     Route: 042
     Dates: start: 20180216, end: 20180220
  101. CLINDAMYCIN. [Concomitant]
     Active Substance: CLINDAMYCIN
     Indication: ABSCESS
  102. FURSEMIDE [Concomitant]
     Active Substance: FUROSEMIDE
     Dosage: 40 MG, UNK
     Route: 042
     Dates: start: 20180131, end: 20180209
  103. CALADRYL                           /01381001/ [Concomitant]
     Dosage: 30 MG, UNK
     Route: 042
     Dates: start: 20180301, end: 20180301
  104. FOLIC ACID. [Concomitant]
     Active Substance: FOLIC ACID
     Indication: ENTEROCOCCAL INFECTION
     Dosage: 5 MG, UNK
     Route: 048
     Dates: start: 20180302
  105. INSULIN [Concomitant]
     Active Substance: INSULIN NOS
     Indication: ENTEROCOCCAL INFECTION
     Dosage: 4 DF, UNK
     Route: 058
     Dates: start: 20180115, end: 20180121
  106. INSULIN [Concomitant]
     Active Substance: INSULIN NOS
     Dosage: 12 DF, UNK
     Route: 058
     Dates: start: 20180202, end: 20180311
  107. IPRATROPIUM W/LEVOSALBUTAMOL [Concomitant]
     Indication: ENTEROCOCCAL INFECTION
     Dosage: 0.5 MG, UNK
     Route: 055
     Dates: start: 20180103, end: 20180104
  108. KCL [Concomitant]
     Active Substance: POTASSIUM CHLORIDE
     Indication: ENTEROCOCCAL INFECTION
     Dosage: 40 DF, UNK (40 CC/ HR))
     Route: 042
     Dates: start: 20180104, end: 20180112
  109. LEVOCETIRIZINE [Concomitant]
     Active Substance: LEVOCETIRIZINE
     Indication: ENTEROCOCCAL INFECTION
     Dosage: 5 MG, UNK
     Route: 048
     Dates: start: 20170922, end: 20171006
  110. NOREPINEPHRINE                     /00127502/ [Concomitant]
     Active Substance: NOREPINEPHRINE BITARTRATE
     Dosage: 16 MG, UNK
     Route: 042
     Dates: start: 20180216, end: 20180228
  111. POVIDONE-IODINE. [Concomitant]
     Active Substance: POVIDONE-IODINE
     Indication: ENTEROCOCCAL INFECTION
     Dosage: 250 ML, UNK
     Route: 050
     Dates: start: 20180104
  112. SPIRONOLACTONE. [Concomitant]
     Active Substance: SPIRONOLACTONE
     Indication: ENTEROCOCCAL INFECTION
     Dosage: 50 MG, UNK
     Route: 048
     Dates: start: 20180104, end: 20180104
  113. TETRASTARCH [Concomitant]
     Indication: ENTEROCOCCAL INFECTION
     Dosage: 500 ML, UNK
     Route: 042
     Dates: start: 20180309, end: 20180309

REACTIONS (48)
  - Oedema [Recovered/Resolved]
  - Haematemesis [Unknown]
  - Death [Fatal]
  - Pulmonary oedema [Unknown]
  - Alanine aminotransferase increased [Unknown]
  - Anaemia [Unknown]
  - Anuria [Unknown]
  - Diarrhoea [Unknown]
  - Hyponatraemia [Unknown]
  - Respiratory failure [Not Recovered/Not Resolved]
  - Oliguria [Unknown]
  - Cerebrovascular accident [Not Recovered/Not Resolved]
  - Tachypnoea [Recovered/Resolved]
  - Acute kidney injury [Unknown]
  - Atrial fibrillation [Not Recovered/Not Resolved]
  - Lung infiltration [Unknown]
  - Hypokalaemia [Recovered/Resolved]
  - Osteoradionecrosis [Recovered/Resolved]
  - Pneumonia [Not Recovered/Not Resolved]
  - Cough [Unknown]
  - Tachycardia [Not Recovered/Not Resolved]
  - Candida infection [Recovered/Resolved]
  - Generalised oedema [Unknown]
  - Hyperkalaemia [Recovered/Resolved]
  - Osteonecrosis of jaw [Recovered/Resolved]
  - Oxygen saturation decreased [Unknown]
  - Swelling [Recovered/Resolved]
  - Facial pain [Recovered/Resolved]
  - Sepsis [Unknown]
  - Feeling abnormal [Unknown]
  - Enterococcal infection [Not Recovered/Not Resolved]
  - Palpitations [Unknown]
  - Respiratory distress [Unknown]
  - Apnoea [Unknown]
  - Breath odour [Unknown]
  - Haemothorax [Unknown]
  - Leukocytosis [Unknown]
  - Pulseless electrical activity [Unknown]
  - Pleural effusion [Unknown]
  - Decreased appetite [Unknown]
  - Erythema [Not Recovered/Not Resolved]
  - Gastrointestinal haemorrhage [Unknown]
  - Dyspnoea [Unknown]
  - C-reactive protein increased [Unknown]
  - Pyrexia [Unknown]
  - Asthenia [Unknown]
  - Abscess [Unknown]
  - Tachypnoea [Recovered/Resolved]

NARRATIVE: CASE EVENT DATE: 20170912
